FAERS Safety Report 11894188 (Version 1)
Quarter: 2016Q1

REPORT INFORMATION
  Report Type: Spontaneous
  Country: DE (occurrence: None)
  Receive Date: 20160106
  Receipt Date: 20160106
  Transmission Date: 20160526
  Serious: Yes (Hospitalization)
  Sender: FDA-Public Use
  Company Number: None

PATIENT
  Sex: Male

DRUGS (10)
  1. DACLATASVIR 0-60-0-0 MG [Suspect]
     Active Substance: DACLATASVIR
     Indication: HEPATITIS C
     Route: 048
     Dates: start: 20150720, end: 20151104
  2. AMOXICILLIN. [Concomitant]
     Active Substance: AMOXICILLIN
  3. SPIRONOLACTON [Concomitant]
     Active Substance: SPIRONOLACTONE
  4. DACLATASVIR. [Concomitant]
     Active Substance: DACLATASVIR
  5. RIBAVIRIN. [Concomitant]
     Active Substance: RIBAVIRIN
  6. SOFOSBUVIR [Concomitant]
     Active Substance: SOFOSBUVIR
  7. TARASEMSOL [Concomitant]
  8. METRONIDAZOL [Concomitant]
     Active Substance: METRONIDAZOLE
  9. RIBAVIRIN 200-0-400(MG) [Suspect]
     Active Substance: RIBAVIRIN
     Indication: HEPATITIS C
     Dosage: 200-0-400 MG 1X PO
     Route: 048
     Dates: start: 20150720, end: 20151104
  10. PANDOPRAOL [Concomitant]

REACTIONS (3)
  - Diarrhoea [None]
  - Musculoskeletal stiffness [None]
  - Pyrexia [None]

NARRATIVE: CASE EVENT DATE: 20151013
